FAERS Safety Report 24998526 (Version 1)
Quarter: 2025Q1

REPORT INFORMATION
  Report Type: Spontaneous
  Country: US (occurrence: US)
  Receive Date: 20250222
  Receipt Date: 20250222
  Transmission Date: 20250409
  Serious: No
  Sender: SANOFI AVENTIS
  Company Number: US-SA-2025SA043153

PATIENT
  Age: 15 Year
  Sex: Male

DRUGS (7)
  1. DUPIXENT [Suspect]
     Active Substance: DUPILUMAB
     Indication: Dermatitis atopic
     Route: 058
     Dates: start: 20240611, end: 20250208
  2. EBGLYSS [Concomitant]
     Active Substance: LEBRIKIZUMAB-LBKZ
  3. HYDROCORTISONE [Concomitant]
     Active Substance: HYDROCORTISONE
  4. FLOVENT [Concomitant]
     Active Substance: FLUTICASONE PROPIONATE
  5. ALBUTEROL [Concomitant]
     Active Substance: ALBUTEROL
  6. AZITHROMYCIN [Concomitant]
     Active Substance: AZITHROMYCIN
  7. LEVOCETIRIZINE [Concomitant]
     Active Substance: LEVOCETIRIZINE

REACTIONS (3)
  - Dry skin [Unknown]
  - Erythema [Recovered/Resolved]
  - Drug ineffective [Unknown]

NARRATIVE: CASE EVENT DATE: 20250208
